FAERS Safety Report 5587408-6 (Version None)
Quarter: 2007Q4

REPORT INFORMATION
  Report Type: 
  Country: None (occurrence: None)
  Receive Date: 20071205
  Receipt Date: 20070226
  Transmission Date: 20080405
  Serious: Yes (Other)
  Sender: FDA-Public Use
  Company Number: HQWYE036127FEB07

PATIENT
  Age: 18 Year
  Sex: Female
  Weight: 45.4 kg

DRUGS (2)
  1. EFFEXOR XR [Suspect]
     Indication: DEPRESSION
     Dosage: OVERDOSE AMOUNT ^7 CAPSULES, 75 MG EACH, A DAY FOR 7 DAYS (525 MG/DAY^, ORAL
     Route: 048
     Dates: start: 20070201, end: 20070201
  2. VITAMIN D [Concomitant]

REACTIONS (4)
  - INSOMNIA [None]
  - INTENTIONAL OVERDOSE [None]
  - SUICIDAL IDEATION [None]
  - WEIGHT DECREASED [None]
